FAERS Safety Report 7919703-7 (Version None)
Quarter: 2011Q4

REPORT INFORMATION
  Report Type: 
  Country: None (occurrence: None)
  Receive Date: 20111117
  Receipt Date: 20111116
  Transmission Date: 20120403
  Serious: Yes (Life-Threatening)
  Sender: FDA-Public Use
  Company Number: RU-ABBOTT-11P-251-0870168-00

PATIENT
  Age: 47 Year
  Sex: Female
  Weight: 69.5 kg

DRUGS (1)
  1. ZEMPLAR [Suspect]
     Indication: HYPERPARATHYROIDISM SECONDARY
     Dosage: 6.7 MKG/DAY 3 TIMES PER WEEK
     Route: 042
     Dates: start: 20111101, end: 20111101

REACTIONS (2)
  - DYSPNOEA [None]
  - CIRCULATORY COLLAPSE [None]
